FAERS Safety Report 16308352 (Version 2)
Quarter: 2019Q2

REPORT INFORMATION
  Report Type: Report from Study
  Country: KR (occurrence: KR)
  Receive Date: 20190514
  Receipt Date: 20190528
  Transmission Date: 20190711
  Serious: No
  Sender: FDA-Public Use
  Company Number: KR-GLAXOSMITHKLINE-KR2019GSK084899

PATIENT
  Age: 59 Year
  Sex: Female
  Weight: 55 kg

DRUGS (5)
  1. MUTERAN [Concomitant]
     Active Substance: ACETYLCYSTEINE
     Indication: ASTHMA
     Dosage: 200 MG, BID
     Dates: start: 20160804
  2. ANYCOUGH [Concomitant]
     Active Substance: THEOBROMINE
     Indication: RHINITIS ALLERGIC
     Dosage: 300 MG, BID
     Dates: start: 20161012
  3. HYABAK EYE DROP [Concomitant]
     Indication: CONJUNCTIVITIS
     Dosage: 1 GTT, SIX TIMES A DAY
     Route: 050
     Dates: start: 20190422
  4. MONTERIZINE [Concomitant]
     Indication: RHINITIS ALLERGIC
     Dosage: 1 DF, QD
     Dates: start: 20180228
  5. FLUTICASONE FUROATE + VILANTEROL TRIFENATATE [Suspect]
     Active Substance: FLUTICASONE FUROATE\VILANTEROL TRIFENATATE
     Indication: ASTHMA
     Dosage: 1 PUFF(S), QD
     Route: 055
     Dates: start: 20190424, end: 20190508

REACTIONS (1)
  - Chest discomfort [Recovered/Resolved]

NARRATIVE: CASE EVENT DATE: 20190427
